FAERS Safety Report 8344969-1 (Version None)
Quarter: 2012Q2

REPORT INFORMATION
  Report Type: 
  Country: None (occurrence: None)
  Receive Date: 20120508
  Receipt Date: 20080818
  Transmission Date: 20120825
  Serious: Yes (Other)
  Sender: FDA-Public Use
  Company Number: US-TEVA-US024413

PATIENT
  Sex: Male
  Weight: 112 kg

DRUGS (7)
  1. POTASSIUM CHLORIDE [Concomitant]
     Dosage: 40 MILLIEQUIVALENTS;
     Route: 048
  2. ATRACURIUM BESYLATE [Concomitant]
     Indication: ACUTE PROMYELOCYTIC LEUKAEMIA
     Dosage: 100 MILLIGRAM;
     Route: 048
     Dates: start: 20080805
  3. ZOFRAN [Concomitant]
     Indication: PREMEDICATION
     Dosage: 8 MILLIGRAM;
     Route: 042
  4. TRISENOX [Suspect]
     Indication: ACUTE PROMYELOCYTIC LEUKAEMIA
     Dosage: 17 MILLIGRAM; 1 MG/ML
     Route: 041
     Dates: start: 20080804
  5. TOPROL-XL [Concomitant]
     Dosage: 50 MILLIGRAM;
     Route: 048
  6. ASPIRIN [Concomitant]
     Dosage: 81 MILLIGRAM;
     Route: 048
  7. SIMVASTATIN [Concomitant]
     Dosage: 20 MILLIGRAM;
     Route: 048

REACTIONS (2)
  - ELECTROCARDIOGRAM QT PROLONGED [None]
  - VISION BLURRED [None]
